FAERS Safety Report 5409524-1 (Version None)
Quarter: 2007Q3

REPORT INFORMATION
  Report Type: 
  Country: None (occurrence: None)
  Receive Date: 20070808
  Receipt Date: 20070808
  Transmission Date: 20080115
  Serious: Yes (Life-Threatening, Hospitalization)
  Sender: FDA-Public Use
  Company Number: None

PATIENT
  Age: 72 Year
  Sex: Male
  Weight: 94.8 kg

DRUGS (1)
  1. PRAVASTATIN [Suspect]
     Indication: HYPERLIPIDAEMIA
     Dosage: 20 MG Q HS PO
     Route: 048

REACTIONS (9)
  - ABDOMINAL PAIN LOWER [None]
  - DYSURIA [None]
  - FATIGUE [None]
  - HAEMODIALYSIS [None]
  - HYPERSOMNIA [None]
  - JOINT STIFFNESS [None]
  - NAUSEA [None]
  - RHABDOMYOLYSIS [None]
  - TEMPERATURE INTOLERANCE [None]
